FAERS Safety Report 10234967 (Version 1)
Quarter: 2014Q2

REPORT INFORMATION
  Report Type: Report from Study
  Country: DE (occurrence: DE)
  Receive Date: 20140613
  Receipt Date: 20140613
  Transmission Date: 20141212
  Serious: Yes (Hospitalization)
  Sender: FDA-Public Use
  Company Number: DE-BAYER-2014-082972

PATIENT
  Age: 67 Year
  Sex: Female

DRUGS (1)
  1. BETAFERON [Suspect]
     Indication: PRIMARY PROGRESSIVE MULTIPLE SCLEROSIS
     Dosage: 250 ?G, QOD
     Route: 058
     Dates: start: 20060930

REACTIONS (2)
  - Gait disturbance [Not Recovered/Not Resolved]
  - Off label use [None]
